FAERS Safety Report 5407862-X (Version None)
Quarter: 2007Q3

REPORT INFORMATION
  Report Type: 
  Country: None (occurrence: None)
  Receive Date: 20070803
  Receipt Date: 20070716
  Transmission Date: 20080115
  Serious: Yes (Other)
  Sender: FDA-Public Use
  Company Number: 5526 / E2B_00010888

PATIENT
  Sex: Female

DRUGS (1)
  1. GLUCOVANCE (TABLET) (METFORMIN, GLIBENCLAMIDE) [Suspect]

REACTIONS (3)
  - DIARRHOEA [None]
  - RENAL DISORDER [None]
  - RENAL INJURY [None]
